FAERS Safety Report 22143238 (Version 1)
Quarter: 2023Q1

REPORT INFORMATION
  Report Type: Spontaneous
  Country: US (occurrence: None)
  Receive Date: 20230324
  Receipt Date: 20230324
  Transmission Date: 20230417
  Serious: No
  Sender: FDA-Public Use
  Company Number: None

PATIENT

DRUGS (2)
  1. KELNOR 1/35 [Suspect]
     Active Substance: ETHINYL ESTRADIOL\ETHYNODIOL DIACETATE
  2. KELNOR 1/50 [Suspect]
     Active Substance: ETHINYL ESTRADIOL\ETHYNODIOL DIACETATE

REACTIONS (4)
  - Drug dispensed to wrong patient [None]
  - Product dispensing error [None]
  - Product dispensing error [None]
  - Therapy interrupted [None]

NARRATIVE: CASE EVENT DATE: 20230217
